FAERS Safety Report 6889929-2 (Version None)
Quarter: 2010Q3

REPORT INFORMATION
  Report Type: 
  Country: None (occurrence: None)
  Receive Date: 20100730
  Receipt Date: 20080603
  Transmission Date: 20110219
  Serious: Yes (Other)
  Sender: FDA-Public Use
  Company Number: US-PFIZER INC-2008047480

PATIENT
  Age: 74 Year
  Sex: Female
  Weight: 79.545 kg

DRUGS (3)
  1. LIPITOR [Suspect]
     Indication: BLOOD CHOLESTEROL INCREASED
     Route: 048
     Dates: start: 20010101
  2. ANTIHYPERTENSIVES [Concomitant]
     Dosage: 50/25
  3. POTASSIUM [Concomitant]

REACTIONS (3)
  - BLOOD TEST ABNORMAL [None]
  - PNEUMONIA [None]
  - WRONG TECHNIQUE IN DRUG USAGE PROCESS [None]
